FAERS Safety Report 6803740-X (Version None)
Quarter: 2010Q2

REPORT INFORMATION
  Report Type: 
  Country: None (occurrence: None)
  Receive Date: 20100628
  Receipt Date: 20100615
  Transmission Date: 20101027
  Serious: Yes (Other)
  Sender: FDA-Public Use
  Company Number: GB-ELI_LILLY_AND_COMPANY-GB201005002450

PATIENT
  Sex: Female
  Weight: 55 kg

DRUGS (3)
  1. PROZAC [Suspect]
     Indication: DEPRESSED MOOD
     Dosage: 10 MG, UNK
     Route: 048
     Dates: end: 20100325
  2. PROZAC [Suspect]
     Dosage: 20 MG, UNK
     Dates: start: 20100326, end: 20100501
  3. PROZAC [Suspect]
     Dosage: UNK, UNK
     Route: 048

REACTIONS (10)
  - ARTHRALGIA [None]
  - ASTHENIA [None]
  - DIZZINESS [None]
  - HYPOAESTHESIA [None]
  - JOINT SWELLING [None]
  - MYALGIA [None]
  - PAIN IN EXTREMITY [None]
  - PRURITUS [None]
  - RED BLOOD CELL SEDIMENTATION RATE INCREASED [None]
  - URTICARIA [None]
